FAERS Safety Report 6823569-6 (Version None)
Quarter: 2010Q3

REPORT INFORMATION
  Report Type: 
  Country: None (occurrence: None)
  Receive Date: 20100708
  Receipt Date: 20100625
  Transmission Date: 20110219
  Serious: Yes (Hospitalization)
  Sender: FDA-Public Use
  Company Number: US-CELGENEUS-163-50794-10062861

PATIENT
  Sex: Female

DRUGS (1)
  1. VIDAZA [Suspect]
     Dosage: 3 DOSES
     Route: 058
     Dates: start: 20100601

REACTIONS (4)
  - PYREXIA [None]
  - RASH [None]
  - SHOCK [None]
  - SWOLLEN TONGUE [None]
